FAERS Safety Report 19155060 (Version 1)
Quarter: 2021Q2

REPORT INFORMATION
  Report Type: Report from Study
  Country: None (occurrence: US)
  Receive Date: 20210420
  Receipt Date: 20210420
  Transmission Date: 20210717
  Serious: Yes (Hospitalization, Other)
  Sender: FDA-Public Use
  Company Number: US-ABBVIE-21K-163-3851230-00

PATIENT
  Age: 63 Year
  Sex: Female

DRUGS (1)
  1. RINVOQ [Suspect]
     Active Substance: UPADACITINIB
     Indication: RHEUMATOID ARTHRITIS
     Route: 048
     Dates: start: 202006, end: 202102

REACTIONS (16)
  - Pain in extremity [Recovered/Resolved]
  - Arthritis [Not Recovered/Not Resolved]
  - Joint swelling [Recovering/Resolving]
  - Feeling hot [Recovered/Resolved]
  - Hypertension [Unknown]
  - Skin discolouration [Recovering/Resolving]
  - Fatigue [Not Recovered/Not Resolved]
  - Gait inability [Recovered/Resolved]
  - Thermal burn [Recovered/Resolved]
  - Streptococcal infection [Recovering/Resolving]
  - Cellulitis [Recovering/Resolving]
  - Cellulitis [Recovering/Resolving]
  - Rheumatoid arthritis [Unknown]
  - Peripheral swelling [Recovering/Resolving]
  - Seizure [Unknown]
  - Skin exfoliation [Recovering/Resolving]

NARRATIVE: CASE EVENT DATE: 202101
